FAERS Safety Report 8146766-9 (Version None)
Quarter: 2012Q1

REPORT INFORMATION
  Report Type: 
  Country: None (occurrence: None)
  Receive Date: 20120217
  Receipt Date: 20110719
  Transmission Date: 20120608
  Serious: No
  Sender: FDA-Public Use
  Company Number: US-ABBOTT-11P-163-0731657-00

PATIENT
  Sex: Male
  Weight: 79.45 kg

DRUGS (4)
  1. COREG [Concomitant]
     Indication: BLOOD PRESSURE
  2. SIMCOR [Suspect]
     Dosage: 500/20 MILLIGRAMS DAILY
     Route: 048
     Dates: start: 20100801
  3. PLAVIX [Concomitant]
     Indication: ANTICOAGULANT THERAPY
  4. SIMCOR [Suspect]
     Indication: BLOOD CHOLESTEROL INCREASED
     Dosage: 500/20 MILLIGRAMS DAILY
     Route: 048
     Dates: start: 20081201, end: 20100701

REACTIONS (7)
  - PRURITUS [None]
  - FLUSHING [None]
  - BURNING SENSATION [None]
  - HYPERHIDROSIS [None]
  - BLOOD BILIRUBIN INCREASED [None]
  - ERYTHEMA [None]
  - FEELING HOT [None]
